FAERS Safety Report 23152052 (Version 1)
Quarter: 2023Q4

REPORT INFORMATION
  Report Type: Spontaneous
  Country: DE (occurrence: DE)
  Receive Date: 20231107
  Receipt Date: 20231107
  Transmission Date: 20240109
  Serious: Yes (Other)
  Sender: FDA-Public Use
  Company Number: None

PATIENT
  Sex: Male

DRUGS (1)
  1. OZEMPIC [Suspect]
     Active Substance: SEMAGLUTIDE
     Indication: Type 2 diabetes mellitus
     Dosage: 1 DF, QW(FOR THE 2ND TIME EVERY 1/4 YEAR WITH THE WEEKLY INJECTION OF 0.5 MG)

REACTIONS (2)
  - Polyneuropathy [Not Recovered/Not Resolved]
  - Burning sensation [Not Recovered/Not Resolved]
